FAERS Safety Report 4903293-7 (Version None)
Quarter: 2006Q1

REPORT INFORMATION
  Report Type: 
  Country: None (occurrence: None)
  Receive Date: 20060208
  Receipt Date: 20060131
  Transmission Date: 20060701
  Serious: Yes (Hospitalization)
  Sender: FDA-Public Use
  Company Number: JP-ABBOTT-06P-087-0323772-00

PATIENT
  Age: 59 Year
  Sex: Male

DRUGS (10)
  1. LIPIDIL [Suspect]
     Indication: HYPERLIPIDAEMIA
     Route: 048
     Dates: start: 20051013, end: 20060107
  2. TEPRENONE [Concomitant]
     Indication: DRUG USE FOR UNKNOWN INDICATION
  3. VANCOMYCIN HYDROCHLORIDE [Concomitant]
     Indication: DRUG USE FOR UNKNOWN INDICATION
  4. LOXOPROFEN SODIUM [Concomitant]
     Indication: DRUG USE FOR UNKNOWN INDICATION
  5. CLOXAZOLAM [Concomitant]
     Indication: DRUG USE FOR UNKNOWN INDICATION
  6. TRYPTANOL/AUS/ [Concomitant]
     Indication: DRUG USE FOR UNKNOWN INDICATION
  7. JUVELA/JPN/ [Concomitant]
     Indication: DRUG USE FOR UNKNOWN INDICATION
  8. NATEGLINIDE [Concomitant]
     Indication: DRUG USE FOR UNKNOWN INDICATION
  9. PIOGLITAZONE HCL [Concomitant]
     Indication: DRUG USE FOR UNKNOWN INDICATION
  10. JUSAN [Concomitant]
     Indication: DRUG USE FOR UNKNOWN INDICATION

REACTIONS (4)
  - DERMATITIS EXFOLIATIVE [None]
  - MUSCULOSKELETAL STIFFNESS [None]
  - OEDEMA [None]
  - PYREXIA [None]
